FAERS Safety Report 8850531 (Version 2)
Quarter: 2013Q3

REPORT INFORMATION
  Report Type: Spontaneous
  Country: US (occurrence: US)
  Receive Date: 20121019
  Receipt Date: 20130722
  Transmission Date: 20140515
  Serious: Yes (Other)
  Sender: FDA-Public Use
  Company Number: CHPA2012US021362

PATIENT
  Age: 23 Month
  Sex: Female
  Weight: 12.18 kg

DRUGS (2)
  1. EX-LAX REG STR CHOCOLATED LAX PCS SEN [Suspect]
     Dosage: UNK, ONCE/SINGLE
     Route: 048
     Dates: start: 20121008, end: 20121008
  2. ANTIBIOTICS [Concomitant]
     Dosage: UNK, UNK

REACTIONS (4)
  - Blister [Recovered/Resolved]
  - Thermal burn [Recovered/Resolved]
  - Accidental overdose [Unknown]
  - Accidental exposure to product by child [Unknown]
